FAERS Safety Report 14301982 (Version 1)
Quarter: 2017Q4

REPORT INFORMATION
  Report Type: Spontaneous
  Country: PT (occurrence: PT)
  Receive Date: 20171219
  Receipt Date: 20171219
  Transmission Date: 20180321
  Serious: Yes (Other)
  Sender: FDA-Public Use
  Company Number: PT-AUROBINDO-AUR-APL-2017-45939

PATIENT
  Age: 63 Year
  Sex: Female

DRUGS (1)
  1. BUPIVACAINE SOLUTION FOR INJECTION [Suspect]
     Active Substance: BUPIVACAINE
     Indication: ANAESTHESIA
     Dosage: 0.5 %, UNK
     Route: 037

REACTIONS (1)
  - Myelopathy [Recovering/Resolving]
